FAERS Safety Report 25014405 (Version 1)
Quarter: 2025Q1

REPORT INFORMATION
  Report Type: Spontaneous
  Country: CN (occurrence: CN)
  Receive Date: 20250226
  Receipt Date: 20250226
  Transmission Date: 20250409
  Serious: Yes (Other)
  Sender: ABBVIE
  Company Number: CN-PFIZER INC-PV202500020240

PATIENT
  Sex: Male

DRUGS (1)
  1. AVIBACTAM SODIUM [Suspect]
     Active Substance: AVIBACTAM SODIUM
     Indication: Product used for unknown indication
     Dosage: 2.5 G, Q8H
     Route: 042

REACTIONS (2)
  - Stem cell transplant [Unknown]
  - Infection [Unknown]
